FAERS Safety Report 4844706-9 (Version None)
Quarter: 2005Q4

REPORT INFORMATION
  Report Type: 
  Country: None (occurrence: None)
  Receive Date: 20051129
  Receipt Date: 20051116
  Transmission Date: 20060501
  Serious: Yes (Death, Life-Threatening)
  Sender: FDA-Public Use
  Company Number: WAES 0510ESP00039

PATIENT
  Age: 52 Year
  Sex: Female

DRUGS (7)
  1. CANCIDAS [Suspect]
     Indication: FUNGAL INFECTION
     Dosage: 70 MG/DAILY  IV    ;   50 MG/DAILY IV  ; 35 MG/DAILY IV
     Route: 042
     Dates: start: 20051019, end: 20051019
  2. CANCIDAS [Suspect]
     Indication: FUNGAL INFECTION
     Dosage: 70 MG/DAILY  IV    ;   50 MG/DAILY IV  ; 35 MG/DAILY IV
     Route: 042
     Dates: start: 20051020, end: 20051022
  3. CANCIDAS [Suspect]
     Indication: FUNGAL INFECTION
     Dosage: 70 MG/DAILY  IV    ;   50 MG/DAILY IV  ; 35 MG/DAILY IV
     Route: 042
     Dates: start: 20051023, end: 20051024
  4. TACROLIMUS [Suspect]
     Indication: RENAL TRANSPLANT
     Dates: start: 20050928, end: 20051024
  5. CEFEPIME [Concomitant]
  6. COLISTIN [Concomitant]
  7. METHYLPREDNISOLONE [Concomitant]

REACTIONS (5)
  - CYTOLYTIC HEPATITIS [None]
  - HAEMODIALYSIS [None]
  - HEPATIC FAILURE [None]
  - RENAL CYST [None]
  - SEPTIC SHOCK [None]
